FAERS Safety Report 23403112 (Version 1)
Quarter: 2024Q1

REPORT INFORMATION
  Report Type: Spontaneous
  Country: US (occurrence: US)
  Receive Date: 20240116
  Receipt Date: 20240116
  Transmission Date: 20240409
  Serious: Yes (Other)
  Sender: FDA-Public Use
  Company Number: US-ALKEM LABORATORIES LIMITED-US-ALKEM-2023-15642

PATIENT
  Age: 21 Year
  Sex: Female

DRUGS (18)
  1. LEVETIRACETAM [Suspect]
     Active Substance: LEVETIRACETAM
     Indication: Status epilepticus
     Dosage: UNK
     Route: 065
  2. CLOBAZAM [Suspect]
     Active Substance: CLOBAZAM
     Indication: Status epilepticus
     Dosage: UNK
     Route: 065
  3. LACOSAMIDE [Suspect]
     Active Substance: LACOSAMIDE
     Indication: Status epilepticus
     Dosage: UNK
     Route: 065
  4. TOPIRAMATE [Suspect]
     Active Substance: TOPIRAMATE
     Indication: Status epilepticus
     Dosage: UNK
     Route: 065
  5. LAMOTRIGINE [Suspect]
     Active Substance: LAMOTRIGINE
     Indication: Status epilepticus
     Dosage: UNK
     Route: 065
  6. PERAMPANEL [Suspect]
     Active Substance: PERAMPANEL
     Indication: Status epilepticus
     Dosage: UNK (INFUSION WAS TITRATED)
     Route: 065
  7. CLONAZEPAM [Suspect]
     Active Substance: CLONAZEPAM
     Indication: Status epilepticus
     Dosage: UNK
     Route: 065
  8. KETAMINE [Suspect]
     Active Substance: KETAMINE
     Indication: Status epilepticus
     Dosage: UNK
     Route: 065
  9. LEVOCARNITINE [Suspect]
     Active Substance: LEVOCARNITINE
     Indication: Status epilepticus
     Dosage: UNK
     Route: 065
  10. MIDAZOLAM [Suspect]
     Active Substance: MIDAZOLAM
     Indication: Status epilepticus
     Dosage: UNK (INFUSION WAS TITRATED)
     Route: 065
  11. MIDAZOLAM [Suspect]
     Active Substance: MIDAZOLAM
     Dosage: UNK (REINTRODUCED DOSE UP TO 20 MG PER HOUR)
     Route: 065
  12. MIDAZOLAM [Suspect]
     Active Substance: MIDAZOLAM
     Dosage: UNK (INFUSION WAS TITRATED)
     Route: 065
  13. PENTOBARBITAL [Suspect]
     Active Substance: PENTOBARBITAL
     Indication: Status epilepticus
     Dosage: UNK
     Route: 065
  14. PHENYTOIN [Suspect]
     Active Substance: PHENYTOIN
     Indication: Status epilepticus
     Dosage: UNK
     Route: 065
  15. PHENYTOIN [Suspect]
     Active Substance: PHENYTOIN
     Dosage: UNK (FOLLOWING FOSPHENYTOIN LOADING DOSE)
     Route: 065
  16. PROPOFOL [Suspect]
     Active Substance: PROPOFOL
     Indication: Status epilepticus
     Dosage: UNK
     Route: 065
  17. PYRIDOXINE [Suspect]
     Active Substance: PYRIDOXINE
     Indication: Status epilepticus
     Dosage: UNK
     Route: 065
  18. VALPROIC ACID [Suspect]
     Active Substance: VALPROIC ACID
     Indication: Status epilepticus
     Dosage: UNK
     Route: 065

REACTIONS (2)
  - Exposure during pregnancy [Unknown]
  - Treatment failure [Unknown]
